FAERS Safety Report 8950419 (Version 22)
Quarter: 2024Q2

REPORT INFORMATION
  Report Type: Other
  Country: US (occurrence: None)
  Receive Date: 20121206
  Receipt Date: 20240521
  Transmission Date: 20240716
  Serious: Yes (Other)
  Sender: FDA-Public Use
  Company Number: US-ROCHE-1163862

PATIENT
  Age: 72 Year
  Sex: Female
  Weight: 9.988 kg

DRUGS (21)
  1. XOLAIR [Suspect]
     Active Substance: OMALIZUMAB
     Indication: Chronic obstructive pulmonary disease
     Route: 058
     Dates: start: 2004
  2. XOLAIR [Suspect]
     Active Substance: OMALIZUMAB
     Indication: Chemical burn
     Dosage: 1 VIAL TWICE A MONTH
     Route: 058
  3. XOLAIR [Suspect]
     Active Substance: OMALIZUMAB
     Indication: Hypersensitivity
     Route: 058
     Dates: start: 2002, end: 2004
  4. XOLAIR [Suspect]
     Active Substance: OMALIZUMAB
     Indication: Asthma
     Route: 058
     Dates: start: 2003
  5. XOLAIR [Suspect]
     Active Substance: OMALIZUMAB
     Indication: Immunodeficiency common variable
     Route: 058
     Dates: start: 2004
  6. XOLAIR [Suspect]
     Active Substance: OMALIZUMAB
     Indication: Asthma
     Route: 058
     Dates: start: 2001
  7. XOLAIR [Suspect]
     Active Substance: OMALIZUMAB
     Dosage: 2-150MG XOLAIR PFS
     Route: 058
  8. HYDROCODONE [Suspect]
     Active Substance: HYDROCODONE
     Indication: Pain
     Route: 065
     Dates: start: 2002
  9. KETOROLAC [Concomitant]
     Active Substance: KETOROLAC TROMETHAMINE
     Route: 065
  10. PREDNISONE [Concomitant]
     Active Substance: PREDNISONE
     Dosage: KILLED HER IMMUNE SYSTEM
     Route: 065
     Dates: end: 2005
  11. LEVALBUTEROL [Concomitant]
     Active Substance: LEVALBUTEROL
  12. CARISOPRODOL [Concomitant]
     Active Substance: CARISOPRODOL
     Indication: Hypotonia
  13. EDECRINE [Concomitant]
  14. NIASPAN ER [Concomitant]
     Active Substance: NIACIN
     Indication: Blood cholesterol
  15. SINGULAIR [Concomitant]
     Active Substance: MONTELUKAST SODIUM
  16. SPIRIVA [Concomitant]
     Active Substance: TIOTROPIUM BROMIDE MONOHYDRATE
  17. XYZAL [Concomitant]
     Active Substance: LEVOCETIRIZINE DIHYDROCHLORIDE
     Indication: Hypersensitivity
  18. XOPENEX [Concomitant]
     Active Substance: LEVALBUTEROL HYDROCHLORIDE
     Dosage: 125MG/3ML
  19. OXYGEN [Concomitant]
     Active Substance: OXYGEN
     Dosage: 24 HOURS/7 DAYS A WEEK
  20. LEVALBUTEROL [Concomitant]
     Active Substance: LEVALBUTEROL
  21. BECONASE AQ [Concomitant]
     Active Substance: BECLOMETHASONE DIPROPIONATE MONOHYDRATE

REACTIONS (59)
  - Anaemia [Recovered/Resolved]
  - Respiratory arrest [Unknown]
  - Anaphylactic reaction [Recovered/Resolved]
  - Pneumonia [Unknown]
  - Breast cancer [Recovered/Resolved]
  - Insomnia [Unknown]
  - Cough [Unknown]
  - Hypertension [Unknown]
  - Alopecia [Unknown]
  - Weight increased [Unknown]
  - Illness [Unknown]
  - Obstructive sleep apnoea syndrome [Not Recovered/Not Resolved]
  - Bronchitis [Unknown]
  - Drug hypersensitivity [Unknown]
  - Dyspnoea [Not Recovered/Not Resolved]
  - Rash [Not Recovered/Not Resolved]
  - Productive cough [Not Recovered/Not Resolved]
  - Sinus congestion [Not Recovered/Not Resolved]
  - Chemical burn of respiratory tract [Unknown]
  - Nausea [Recovered/Resolved]
  - Headache [Unknown]
  - Infusion related reaction [Unknown]
  - Urticaria [Recovering/Resolving]
  - Oropharyngeal pain [Not Recovered/Not Resolved]
  - Hypersensitivity [Unknown]
  - Sinusitis [Unknown]
  - Ear disorder [Unknown]
  - Lacrimation increased [Unknown]
  - Nasal congestion [Unknown]
  - Migraine [Unknown]
  - Oxygen saturation decreased [Unknown]
  - Oral mucosal blistering [Unknown]
  - Oropharyngeal blistering [Unknown]
  - Pruritus [Unknown]
  - Ear pruritus [Unknown]
  - Ear discomfort [Unknown]
  - Skin burning sensation [Unknown]
  - Eye discharge [Unknown]
  - Vomiting [Unknown]
  - Skin discolouration [Unknown]
  - Lip swelling [Unknown]
  - Swollen tongue [Unknown]
  - Dysphonia [Not Recovered/Not Resolved]
  - Concussion [Recovered/Resolved]
  - Osteopenia [Not Recovered/Not Resolved]
  - Epistaxis [Recovered/Resolved]
  - Chronic obstructive pulmonary disease [Not Recovered/Not Resolved]
  - Polyp [Recovered/Resolved]
  - Cardiac murmur [Not Recovered/Not Resolved]
  - Glucose tolerance impaired [Not Recovered/Not Resolved]
  - Diastolic dysfunction [Recovering/Resolving]
  - Immunodeficiency [Not Recovered/Not Resolved]
  - Pain [Not Recovered/Not Resolved]
  - Gallbladder rupture [Unknown]
  - Asthma [Unknown]
  - Road traffic accident [Unknown]
  - Muscular weakness [Unknown]
  - Spinal osteoarthritis [Unknown]
  - Jaw fracture [Unknown]

NARRATIVE: CASE EVENT DATE: 20020101
